FAERS Safety Report 6868539-7 (Version None)
Quarter: 2010Q3

REPORT INFORMATION
  Report Type: 
  Country: None (occurrence: None)
  Receive Date: 20100722
  Receipt Date: 20080530
  Transmission Date: 20110219
  Serious: No
  Sender: FDA-Public Use
  Company Number: US-PFIZER INC-2008046880

PATIENT
  Sex: Male
  Weight: 77.11 kg

DRUGS (2)
  1. CHANTIX [Suspect]
     Indication: SMOKING CESSATION THERAPY
     Dates: start: 20080524
  2. NICOTINE [Suspect]
     Indication: SMOKING CESSATION THERAPY
     Dates: start: 20080524

REACTIONS (3)
  - ABDOMINAL DISCOMFORT [None]
  - INCORRECT DOSE ADMINISTERED [None]
  - NAUSEA [None]
